FAERS Safety Report 15505736 (Version 1)
Quarter: 2018Q4

REPORT INFORMATION
  Report Type: Spontaneous
  Country: SA (occurrence: SA)
  Receive Date: 20181016
  Receipt Date: 20181016
  Transmission Date: 20190205
  Serious: Yes (Other)
  Sender: FDA-Public Use
  Company Number: SA-INGENUS PHARMACEUTICALS, LLC-INF201810-001001

PATIENT
  Age: 73 Year
  Sex: Male

DRUGS (1)
  1. CLOBETASOL PROPIONATE. [Suspect]
     Active Substance: CLOBETASOL PROPIONATE
     Indication: PEMPHIGOID
     Dosage: DAILY FOR NINE MONTHS SINCE HIS FIRST PRESENTATION
     Route: 061

REACTIONS (1)
  - Kaposi^s sarcoma [Recovered/Resolved]
